FAERS Safety Report 25041665 (Version 1)
Quarter: 2025Q1

REPORT INFORMATION
  Report Type: Spontaneous
  Country: US (occurrence: US)
  Receive Date: 20250305
  Receipt Date: 20250305
  Transmission Date: 20250409
  Serious: No
  Sender: BIOGEN
  Company Number: US-BIOGEN-2024BI01257820

PATIENT
  Age: 64 Year
  Sex: Female

DRUGS (7)
  1. TYSABRI [Suspect]
     Active Substance: NATALIZUMAB
     Indication: Multiple sclerosis
     Route: 050
     Dates: start: 20080109, end: 20090123
  2. TYSABRI [Suspect]
     Active Substance: NATALIZUMAB
     Route: 050
     Dates: start: 20090512, end: 20121231
  3. TYSABRI [Suspect]
     Active Substance: NATALIZUMAB
     Dosage: STOP DATE ALSO REPORTED AS 24-MAY-2017
     Route: 050
     Dates: start: 20130524, end: 20150506
  4. TYSABRI [Suspect]
     Active Substance: NATALIZUMAB
     Route: 050
     Dates: start: 20151110, end: 20170629
  5. TYSABRI [Suspect]
     Active Substance: NATALIZUMAB
     Route: 050
     Dates: start: 20231221
  6. TYSABRI [Suspect]
     Active Substance: NATALIZUMAB
     Route: 050
  7. GABAPENTIN [Concomitant]
     Active Substance: GABAPENTIN
     Indication: Neuralgia
     Route: 050

REACTIONS (4)
  - Prescribed underdose [Not Recovered/Not Resolved]
  - Paraesthesia [Unknown]
  - Burning sensation [Unknown]
  - Hypoaesthesia [Unknown]

NARRATIVE: CASE EVENT DATE: 20250303
